FAERS Safety Report 10354720 (Version 1)
Quarter: 2014Q3

REPORT INFORMATION
  Report Type: Spontaneous
  Country: GB (occurrence: None)
  Receive Date: 20140729
  Receipt Date: 20140729
  Transmission Date: 20150326
  Serious: Yes (Hospitalization)
  Sender: FDA-Public Use
  Company Number: GB-H14001-14-00275

PATIENT
  Age: 38 Year
  Sex: Female

DRUGS (4)
  1. PHENYTOIN. [Suspect]
     Active Substance: PHENYTOIN
     Indication: PARTIAL SEIZURES
     Dates: end: 2014
  2. KEPPRA [Suspect]
     Active Substance: LEVETIRACETAM
     Indication: EPILEPSY
     Route: 048
     Dates: start: 20140114, end: 201402
  3. AMITRIPTYLINE [Concomitant]
     Active Substance: AMITRIPTYLINE
  4. LAMOTRIGINE. [Concomitant]
     Active Substance: LAMOTRIGINE

REACTIONS (12)
  - Somnolence [None]
  - Neoplasm [None]
  - Toxicity to various agents [None]
  - Potentiating drug interaction [None]
  - Gingival disorder [None]
  - Vision blurred [None]
  - Ataxia [None]
  - Nystagmus [None]
  - Diplopia [None]
  - Tongue ulceration [None]
  - Balance disorder [None]
  - Fatigue [None]

NARRATIVE: CASE EVENT DATE: 2014
